FAERS Safety Report 22876769 (Version 3)
Quarter: 2023Q4

REPORT INFORMATION
  Report Type: Spontaneous
  Country: US (occurrence: US)
  Receive Date: 20230829
  Receipt Date: 20231016
  Transmission Date: 20240110
  Serious: Yes (Other)
  Sender: FDA-Public Use
  Company Number: US-PFIZER INC-202300283666

PATIENT
  Age: 58 Year
  Sex: Male
  Weight: 102.04 kg

DRUGS (21)
  1. INLYTA [Suspect]
     Active Substance: AXITINIB
     Indication: Renal cell carcinoma
     Dosage: 5 MG, 2X/DAY
     Dates: start: 20230807
  2. UREA [Concomitant]
     Active Substance: UREA
     Dosage: UNK
  3. PREGABALIN [Concomitant]
     Active Substance: PREGABALIN
     Dosage: UNK
  4. IRISH MOSS [Concomitant]
     Dosage: UNK
  5. OXYCODONE AND ACETAMINOPHEN [Concomitant]
     Active Substance: ACETAMINOPHEN\OXYCODONE HYDROCHLORIDE
     Dosage: UNK
  6. KEYTRUDA [Concomitant]
     Active Substance: PEMBROLIZUMAB
     Dosage: UNK
  7. VIAGRA [Concomitant]
     Active Substance: SILDENAFIL CITRATE
     Dosage: UNK
  8. ATORVASTATIN CALCIUM [Concomitant]
     Active Substance: ATORVASTATIN CALCIUM
     Dosage: UNK
  9. LIDOCAINE [Concomitant]
     Active Substance: LIDOCAINE
     Dosage: UNK
  10. BUPROPION [Concomitant]
     Active Substance: BUPROPION
     Dosage: UNK
  11. ACETAMINOPHEN [Concomitant]
     Active Substance: ACETAMINOPHEN
     Dosage: UNK
  12. BACLOFEN [Concomitant]
     Active Substance: BACLOFEN
     Dosage: UNK
  13. TRAMADOL HCL [Concomitant]
     Active Substance: TRAMADOL HYDROCHLORIDE
     Dosage: UNK
  14. EZETIMIBE [Concomitant]
     Active Substance: EZETIMIBE
     Dosage: UNK
  15. DICLOFENAC SODIUM [Concomitant]
     Active Substance: DICLOFENAC\DICLOFENAC SODIUM
     Dosage: UNK
  16. KETOCONAZOLE [Concomitant]
     Active Substance: KETOCONAZOLE
     Dosage: UNK
  17. EPIPEN [Concomitant]
     Active Substance: EPINEPHRINE
     Dosage: UNK
  18. CETIRIZINE HYDROCHLORIDE [Concomitant]
     Active Substance: CETIRIZINE HYDROCHLORIDE
     Dosage: UNK
  19. SPIRONOLACTONE [Concomitant]
     Active Substance: SPIRONOLACTONE
     Dosage: UNK
  20. PROCHLORPERAZINE MALEATE [Concomitant]
     Active Substance: PROCHLORPERAZINE MALEATE
     Dosage: UNK
  21. FLONASE ALLERGY RELIEF [Concomitant]
     Active Substance: FLUTICASONE PROPIONATE
     Dosage: UNK

REACTIONS (27)
  - Neuropathy peripheral [Unknown]
  - Skin lesion [Unknown]
  - Hyperkeratosis [Unknown]
  - Dysphonia [Not Recovered/Not Resolved]
  - Nasal ulcer [Recovering/Resolving]
  - Blood pressure fluctuation [Unknown]
  - Palmar-plantar erythrodysaesthesia syndrome [Unknown]
  - Paraesthesia [Not Recovered/Not Resolved]
  - Oropharyngeal pain [Not Recovered/Not Resolved]
  - Back pain [Not Recovered/Not Resolved]
  - Skin lesion [Not Recovered/Not Resolved]
  - Oropharyngeal discomfort [Not Recovered/Not Resolved]
  - Thyroid mass [Not Recovered/Not Resolved]
  - Dysphagia [Not Recovered/Not Resolved]
  - Arthralgia [Not Recovered/Not Resolved]
  - Pain in extremity [Not Recovered/Not Resolved]
  - Fatigue [Not Recovered/Not Resolved]
  - Ear discomfort [Not Recovered/Not Resolved]
  - Stomatitis [Recovered/Resolved]
  - Tongue disorder [Recovered/Resolved]
  - Chest pain [Recovered/Resolved]
  - Cough [Recovered/Resolved]
  - Dysuria [Not Recovered/Not Resolved]
  - Blood pressure increased [Not Recovered/Not Resolved]
  - Hyperaesthesia [Not Recovered/Not Resolved]
  - Temperature intolerance [Not Recovered/Not Resolved]
  - Glossodynia [Unknown]

NARRATIVE: CASE EVENT DATE: 20230101
